FAERS Safety Report 19550916 (Version 2)
Quarter: 2021Q3

REPORT INFORMATION
  Report Type: Other
  Country: US (occurrence: US)
  Receive Date: 20210714
  Receipt Date: 20210918
  Transmission Date: 20211014
  Serious: Yes (Other)
  Sender: FDA-Public Use
  Company Number: US-ROCHE-2842182

PATIENT
  Age: 38 Year
  Sex: Female
  Weight: 79.45 kg

DRUGS (7)
  1. XOLAIR [Suspect]
     Active Substance: OMALIZUMAB
  2. BROMELAINS;QUERCETIN [Concomitant]
     Dosage: 500MG QUERCETIN/250MG BROMELAIN
  3. XOLAIR [Suspect]
     Active Substance: OMALIZUMAB
  4. ZYRTEC (UNITED STATES) [Concomitant]
     Route: 048
  5. XOLAIR [Suspect]
     Active Substance: OMALIZUMAB
     Indication: CHRONIC SPONTANEOUS URTICARIA
     Dosage: 150 MG/ML
     Route: 058
     Dates: start: 20210512
  6. ALLEGRA [Concomitant]
     Active Substance: FEXOFENADINE HYDROCHLORIDE
     Route: 048
  7. VITAMIN C [Concomitant]
     Active Substance: ASCORBIC ACID

REACTIONS (6)
  - Body temperature increased [Unknown]
  - Pruritus [Unknown]
  - Drug ineffective [Unknown]
  - Angioedema [Not Recovered/Not Resolved]
  - Urticaria [Not Recovered/Not Resolved]
  - Rash [Unknown]

NARRATIVE: CASE EVENT DATE: 20210512
